FAERS Safety Report 5882466-3 (Version None)
Quarter: 2008Q3

REPORT INFORMATION
  Report Type: 
  Country: None (occurrence: None)
  Receive Date: 20080913
  Receipt Date: 20080806
  Transmission Date: 20090109
  Serious: No
  Sender: FDA-Public Use
  Company Number: US-ABBOTT-08P-163-0469269-00

PATIENT
  Sex: Female
  Weight: 72.64 kg

DRUGS (15)
  1. HUMIRA [Suspect]
     Indication: RHEUMATOID ARTHRITIS
     Route: 050
     Dates: start: 20080601
  2. HEPAGRISEVIT FORTE-N [Concomitant]
     Indication: VITAMIN SUPPLEMENTATION
  3. DIPYRIDAMOLE [Concomitant]
     Indication: HYPERTENSION
     Dates: start: 20050101
  4. DIPYRIDAMOLE [Concomitant]
     Indication: CARDIAC DISORDER
  5. FISH OIL [Concomitant]
     Indication: BLOOD TRIGLYCERIDES
     Dosage: 4 ONCE DAILY
     Dates: start: 20080401
  6. INEGY [Concomitant]
     Indication: BLOOD CHOLESTEROL
     Dates: start: 20070101
  7. ACETYLSALICYLIC ACID SRT [Concomitant]
     Indication: THROMBOSIS
     Dates: start: 20080401
  8. ATENOLOL [Concomitant]
     Indication: BLOOD PRESSURE
  9. SANTURA [Concomitant]
     Indication: BLADDER DISORDER
     Dates: start: 20060101
  10. PREDNISONE TAB [Concomitant]
     Indication: RHEUMATOID ARTHRITIS
     Dates: start: 19980101
  11. ALENDRONATE SODIUM [Concomitant]
     Indication: OSTEOPOROSIS PROPHYLAXIS
  12. VACCINIUM MACROCARPON [Concomitant]
     Indication: BLADDER DISORDER
  13. ERGOCALCIFEROL [Concomitant]
     Indication: DRUG USE FOR UNKNOWN INDICATION
  14. IRON [Concomitant]
     Indication: DRUG USE FOR UNKNOWN INDICATION
  15. ZINC OXIDE [Concomitant]
     Indication: DRUG USE FOR UNKNOWN INDICATION

REACTIONS (1)
  - ALOPECIA [None]
